FAERS Safety Report 7606927-1 (Version None)
Quarter: 2011Q3

REPORT INFORMATION
  Report Type: 
  Country: None (occurrence: None)
  Receive Date: 20110713
  Receipt Date: 20110628
  Transmission Date: 20111222
  Serious: Yes (Death)
  Sender: FDA-Public Use
  Company Number: US-PFIZER INC-2008153728

PATIENT
  Age: 43 Year
  Sex: Male

DRUGS (8)
  1. GABAPENTIN [Suspect]
     Dosage: UNK
     Dates: end: 20070101
  2. MORPHINE [Suspect]
     Dosage: UNK
     Route: 048
     Dates: end: 20070101
  3. VENLAFAXINE HCL [Suspect]
     Dosage: UNK
     Route: 048
     Dates: end: 20070101
  4. NAPROXEN [Suspect]
     Dosage: UNK
     Route: 048
     Dates: end: 20070101
  5. BACLOFEN [Suspect]
     Dosage: UNK
     Route: 048
     Dates: end: 20070101
  6. LISINOPRIL [Suspect]
     Dosage: UNK
     Dates: end: 20070101
  7. ETHANOL [Suspect]
     Dosage: UNK
     Route: 048
     Dates: end: 20070101
  8. AMITRIPTYLINE [Suspect]
     Dosage: UNK
     Route: 048
     Dates: end: 20070101

REACTIONS (3)
  - COMPLETED SUICIDE [None]
  - CARDIAC ARREST [None]
  - RESPIRATORY ARREST [None]
